FAERS Safety Report 6726279-9 (Version None)
Quarter: 2010Q2

REPORT INFORMATION
  Report Type: 
  Country: None (occurrence: None)
  Receive Date: 20100514
  Receipt Date: 20100505
  Transmission Date: 20101027
  Serious: Yes (Hospitalization, Other)
  Sender: FDA-Public Use
  Company Number: US-JNJFOC-20100501557

PATIENT
  Age: 14 Year
  Sex: Female
  Weight: 33.52 kg

DRUGS (2)
  1. INFLIXIMAB [Suspect]
     Indication: JUVENILE ARTHRITIS
     Route: 042
  2. IMURAN [Suspect]
     Indication: JUVENILE ARTHRITIS
     Route: 048

REACTIONS (4)
  - BETA HAEMOLYTIC STREPTOCOCCAL INFECTION [None]
  - EAR INFECTION [None]
  - LYMPHADENITIS [None]
  - PHARYNGITIS [None]
